FAERS Safety Report 15586663 (Version 1)
Quarter: 2018Q4

REPORT INFORMATION
  Report Type: Spontaneous
  Country: BR (occurrence: BR)
  Receive Date: 20181105
  Receipt Date: 20181105
  Transmission Date: 20190205
  Serious: Yes (Other)
  Sender: FDA-Public Use
  Company Number: BR-JNJFOC-20181042063

PATIENT
  Sex: Female

DRUGS (5)
  1. PREGABALINA [Concomitant]
     Active Substance: PREGABALIN
     Route: 065
  2. RANITIDINE. [Concomitant]
     Active Substance: RANITIDINE
     Route: 065
  3. DEFLAZACORTE [Concomitant]
     Active Substance: DEFLAZACORT
     Route: 065
  4. SIMPONI [Suspect]
     Active Substance: GOLIMUMAB
     Indication: TENDONITIS
     Route: 058
     Dates: start: 2017
  5. TYLENOL [Concomitant]
     Active Substance: ACETAMINOPHEN
     Route: 065

REACTIONS (5)
  - Surgery [Unknown]
  - Product use in unapproved indication [Unknown]
  - Pharyngitis [Unknown]
  - Off label use [Unknown]
  - Tendonitis [Recovered/Resolved]

NARRATIVE: CASE EVENT DATE: 2017
